FAERS Safety Report 8987791 (Version 1)
Quarter: 2012Q4

REPORT INFORMATION
  Report Type: 
  Country: US (occurrence: US)
  Receive Date: 20121227
  Receipt Date: 20121227
  Transmission Date: 20130627
  Serious: No
  Sender: FDA-Public Use
  Company Number: US-PFIZER INC-2012327371

PATIENT
  Age: 50 Year
  Sex: Female

DRUGS (2)
  1. RAPAMUNE [Suspect]
     Indication: ORGAN TRANSPLANT
     Dosage: 6 mg, daily
  2. RAPAMUNE [Suspect]
     Dosage: 1 mg, 2x/day
     Dates: start: 20120925

REACTIONS (1)
  - Oedema peripheral [Unknown]
